FAERS Safety Report 5363253-1 (Version None)
Quarter: 2007Q2

REPORT INFORMATION
  Report Type: 
  Country: None (occurrence: None)
  Receive Date: 20070530
  Receipt Date: 20070112
  Transmission Date: 20071010
  Serious: No
  Sender: FDA-Public Use
  Company Number: 2006PV025408

PATIENT
  Age: 60 Year
  Sex: Male
  Weight: 133.8111 kg

DRUGS (9)
  1. BYETTA [Suspect]
     Indication: DIABETES MELLITUS NON-INSULIN-DEPENDENT
     Dosage: SEE IMAGE
     Route: 058
     Dates: start: 20061001, end: 20061101
  2. BYETTA [Suspect]
     Indication: DIABETES MELLITUS NON-INSULIN-DEPENDENT
     Dosage: SEE IMAGE
     Route: 058
     Dates: start: 20061101
  3. MICRONASE [Concomitant]
  4. ACTOS [Concomitant]
  5. LANTUS [Concomitant]
  6. UNKNOWN REGULAR INSULIN [Concomitant]
  7. PRILOSEC [Concomitant]
  8. PROTONIX [Concomitant]
  9. MICRONASE [Concomitant]

REACTIONS (7)
  - ABDOMINAL PAIN UPPER [None]
  - BLOOD GLUCOSE INCREASED [None]
  - DYSPEPSIA [None]
  - GASTROOESOPHAGEAL REFLUX DISEASE [None]
  - NAUSEA [None]
  - STRESS [None]
  - WEIGHT DECREASED [None]
